FAERS Safety Report 25028084 (Version 4)
Quarter: 2025Q4

REPORT INFORMATION
  Report Type: Spontaneous
  Country: US (occurrence: US)
  Receive Date: 20250301
  Receipt Date: 20251121
  Transmission Date: 20260117
  Serious: No
  Sender: SANOFI AVENTIS
  Company Number: US-SA-2025SA058376

PATIENT
  Age: 67 Year
  Sex: Female

DRUGS (2)
  1. DUPIXENT [Suspect]
     Active Substance: DUPILUMAB
     Indication: Nasal polyps
     Dosage: 300 MG, QOW
     Route: 058
     Dates: start: 202501
  2. DUPIXENT [Suspect]
     Active Substance: DUPILUMAB
     Indication: Sinusitis

REACTIONS (13)
  - Rhinorrhoea [Unknown]
  - Cough [Unknown]
  - Sneezing [Unknown]
  - Joint swelling [Unknown]
  - Sinusitis [Unknown]
  - Condition aggravated [Unknown]
  - Nasal congestion [Unknown]
  - Toothache [Unknown]
  - Insomnia [Unknown]
  - Arthralgia [Unknown]
  - Nasal polyps [Unknown]
  - Condition aggravated [Unknown]
  - Product use in unapproved indication [Unknown]

NARRATIVE: CASE EVENT DATE: 20250101
